FAERS Safety Report 9399382 (Version 1)
Quarter: 2013Q3

REPORT INFORMATION
  Report Type: Spontaneous
  Country: US (occurrence: US)
  Receive Date: 20130715
  Receipt Date: 20130715
  Transmission Date: 20140515
  Serious: No
  Sender: FDA-Public Use
  Company Number: US-PFIZER INC-2013204036

PATIENT
  Age: 65 Year
  Sex: Female

DRUGS (4)
  1. ADVIL [Suspect]
     Dosage: UNK
  2. VALSARTAN [Concomitant]
     Dosage: UNK
  3. AMLODIPINE [Concomitant]
     Dosage: UNK
  4. NEXIUM [Concomitant]
     Dosage: UNK

REACTIONS (1)
  - Abnormal dreams [Recovered/Resolved]
